FAERS Safety Report 20798241 (Version 2)
Quarter: 2022Q2

REPORT INFORMATION
  Report Type: Spontaneous
  Country: US (occurrence: US)
  Receive Date: 20220507
  Receipt Date: 20220627
  Transmission Date: 20220721
  Serious: No
  Sender: FDA-Public Use
  Company Number: US-SA-SAC20220503000907

PATIENT
  Age: 31 Year
  Sex: Female

DRUGS (4)
  1. DUPIXENT [Suspect]
     Active Substance: DUPILUMAB
     Indication: Dermatitis atopic
     Dosage: 300 MG, QOW
     Route: 058
     Dates: start: 20220112
  2. CIBINQO [Concomitant]
     Active Substance: ABROCITINIB
  3. EUCRISA [Concomitant]
     Active Substance: CRISABOROLE
  4. PROTOPIC [Concomitant]
     Active Substance: TACROLIMUS

REACTIONS (4)
  - Rash [Unknown]
  - Dermatitis atopic [Unknown]
  - Treatment failure [Unknown]
  - Drug ineffective [Unknown]
